FAERS Safety Report 9196984 (Version 3)
Quarter: 2014Q2

REPORT INFORMATION
  Report Type: Spontaneous
  Country: US (occurrence: US)
  Receive Date: 20130328
  Receipt Date: 20140422
  Transmission Date: 20141212
  Serious: Yes (Hospitalization)
  Sender: FDA-Public Use
  Company Number: US-JNJFOC-20130312245

PATIENT
  Age: 61 Year
  Sex: Male
  Weight: 105.69 kg

DRUGS (10)
  1. XARELTO [Suspect]
     Indication: CEREBROVASCULAR ACCIDENT PROPHYLAXIS
     Route: 048
     Dates: start: 201303, end: 201303
  2. XARELTO [Suspect]
     Indication: CEREBROVASCULAR ACCIDENT PROPHYLAXIS
     Route: 048
     Dates: end: 20130109
  3. XARELTO [Suspect]
     Indication: CEREBROVASCULAR ACCIDENT PROPHYLAXIS
     Route: 048
     Dates: start: 20121212, end: 20121230
  4. XARELTO [Suspect]
     Indication: ATRIAL FIBRILLATION
     Route: 048
     Dates: start: 20121212, end: 20121230
  5. XARELTO [Suspect]
     Indication: ATRIAL FIBRILLATION
     Route: 048
     Dates: end: 20130109
  6. XARELTO [Suspect]
     Indication: ATRIAL FIBRILLATION
     Route: 048
     Dates: start: 201303, end: 201303
  7. NORVASC [Concomitant]
     Dosage: 10 UNITS UNSPECIFIED
     Route: 048
  8. DILACOR [Concomitant]
     Dosage: 240 UNITS UNSPECIFIED
     Route: 048
  9. ZESTRIL [Concomitant]
     Dosage: 20 UNITS UNSPECIFIED
     Route: 048
  10. SIMVASTATIN [Concomitant]
     Dosage: 10 UNITS UNSPECIFIED
     Route: 065

REACTIONS (5)
  - Renal haemorrhage [Recovered/Resolved]
  - Cardiac valve disease [Unknown]
  - Pyelonephritis [Unknown]
  - Blood urine present [Recovered/Resolved]
  - Abdominal pain [Recovered/Resolved]
